FAERS Safety Report 5578867-3 (Version None)
Quarter: 2007Q4

REPORT INFORMATION
  Report Type: 
  Country: None (occurrence: None)
  Receive Date: 20071228
  Receipt Date: 20071218
  Transmission Date: 20080405
  Serious: Yes (Other)
  Sender: FDA-Public Use
  Company Number: 2007S1013565

PATIENT
  Age: 42 Year
  Sex: Female

DRUGS (4)
  1. CYCLOBENZAPRINE HYDROCHLORIDE [Suspect]
     Indication: MUSCLE SPASMS
     Dosage: 10 MG;AT BEDTIME;ORAL
     Route: 048
     Dates: start: 20071101, end: 20071212
  2. VOLTAREN /00372304/ [Concomitant]
  3. SIMVASTATIN [Concomitant]
  4. SOMA [Concomitant]

REACTIONS (2)
  - DYSARTHRIA [None]
  - FACIAL PALSY [None]
